FAERS Safety Report 6066571-7 (Version None)
Quarter: 2009Q1

REPORT INFORMATION
  Report Type: 
  Country: None (occurrence: None)
  Receive Date: 20090205
  Receipt Date: 20090129
  Transmission Date: 20090719
  Serious: Yes (Other)
  Sender: FDA-Public Use
  Company Number: A0765673A

PATIENT
  Age: 43 Year
  Sex: Female

DRUGS (5)
  1. IMITREX [Suspect]
     Indication: MIGRAINE
     Dosage: 100MG AS REQUIRED
     Route: 048
     Dates: start: 20081001, end: 20081220
  2. FLUOXETINE HCL [Suspect]
     Dosage: 40MG PER DAY
     Route: 048
     Dates: start: 20070801
  3. TRAZODONE HCL [Suspect]
     Indication: SLEEP DISORDER
     Dosage: 50MG PER DAY
     Route: 048
     Dates: start: 20070801
  4. XANAX [Concomitant]
  5. TYLENOL (CAPLET) [Concomitant]

REACTIONS (8)
  - AGGRESSION [None]
  - CHEST DISCOMFORT [None]
  - DRUG INTERACTION [None]
  - DYSPHAGIA [None]
  - DYSPNOEA [None]
  - PANIC REACTION [None]
  - THROAT TIGHTNESS [None]
  - WEIGHT DECREASED [None]
